FAERS Safety Report 19207238 (Version 1)
Quarter: 2021Q2

REPORT INFORMATION
  Report Type: Report from Study
  Country: TH (occurrence: TH)
  Receive Date: 20210501
  Receipt Date: 20210501
  Transmission Date: 20210717
  Serious: Yes (Other)
  Sender: FDA-Public Use
  Company Number: TH-ASTRAZENECA-2021A353972

PATIENT
  Age: 66 Year
  Sex: Female

DRUGS (1)
  1. TAGRISSO [Suspect]
     Active Substance: OSIMERTINIB
     Indication: LUNG NEOPLASM MALIGNANT
     Route: 048
     Dates: start: 20190423, end: 20210108

REACTIONS (10)
  - Gait disturbance [Not Recovered/Not Resolved]
  - Drug ineffective [Not Recovered/Not Resolved]
  - Carcinoembryonic antigen increased [Not Recovered/Not Resolved]
  - Dry skin [Recovering/Resolving]
  - Drug resistance [Not Recovered/Not Resolved]
  - Constipation [Unknown]
  - Dry throat [Unknown]
  - Malignant neoplasm progression [Not Recovered/Not Resolved]
  - Dysphonia [Not Recovered/Not Resolved]
  - Lip dry [Recovering/Resolving]

NARRATIVE: CASE EVENT DATE: 2019
